FAERS Safety Report 9919031 (Version 1)
Quarter: 2014Q1

REPORT INFORMATION
  Report Type: Spontaneous
  Country: US (occurrence: US)
  Receive Date: 20140224
  Receipt Date: 20140224
  Transmission Date: 20141002
  Serious: No
  Sender: FDA-Public Use
  Company Number: US-BAYER-2014-027910

PATIENT
  Sex: Female

DRUGS (7)
  1. ALEVE CAPLET [Suspect]
     Dosage: PRN, 1-2 TABLETS
     Route: 048
     Dates: start: 201402, end: 201402
  2. BAYER ASPIRIN REGIMEN REGULAR 325 MG STRENGTH [Concomitant]
  3. METOPROLOL [Concomitant]
  4. AMLODIPINE [Concomitant]
  5. ALLERGY MEDICATION [Concomitant]
  6. LEVOTHYROXINE [Concomitant]
  7. FLOVENT [Concomitant]

REACTIONS (1)
  - Heart rate decreased [Recovered/Resolved]
